FAERS Safety Report 5977574-2 (Version None)
Quarter: 2008Q4

REPORT INFORMATION
  Report Type: 
  Country: None (occurrence: None)
  Receive Date: 20081201
  Receipt Date: 20081201
  Transmission Date: 20090506
  Serious: Yes (Hospitalization, Disabling)
  Sender: FDA-Public Use
  Company Number: None

PATIENT
  Sex: Male
  Weight: 114.3065 kg

DRUGS (2)
  1. LIDOCAINE [Suspect]
     Indication: VENTRICULAR TACHYCARDIA
     Dosage: 2MG/MIN= 2.5 ML INFUSED IV DRIP
     Route: 041
     Dates: start: 20081129, end: 20081129
  2. LIDOCAINE [Suspect]
     Dosage: 120MG= 6ML X2 IV BOLUS
     Route: 040

REACTIONS (5)
  - DRUG INEFFECTIVE [None]
  - EYE DISORDER [None]
  - MOVEMENT DISORDER [None]
  - MUSCLE TWITCHING [None]
  - SPEECH DISORDER [None]
